FAERS Safety Report 18405095 (Version 1)
Quarter: 2020Q4

REPORT INFORMATION
  Report Type: Spontaneous
  Country: GB (occurrence: GB)
  Receive Date: 20201020
  Receipt Date: 20201020
  Transmission Date: 20210114
  Serious: Yes (Other)
  Sender: FDA-Public Use
  Company Number: GB-AMGEN-GBRSP2020167137

PATIENT
  Age: 45 Year
  Sex: Female

DRUGS (5)
  1. FEMARA [Suspect]
     Active Substance: LETROZOLE
     Indication: BREAST CANCER METASTATIC
     Dosage: UNK
     Route: 065
     Dates: start: 201908
  2. XGEVA [Suspect]
     Active Substance: DENOSUMAB
     Indication: HER2 NEGATIVE BREAST CANCER
     Dosage: UNK
     Route: 065
     Dates: start: 201908
  3. IBRANCE [Suspect]
     Active Substance: PALBOCICLIB
     Indication: BREAST CANCER METASTATIC
     Dosage: 100 MILLIGRAM, CYCLICAL
     Route: 065
  4. IBRANCE [Suspect]
     Active Substance: PALBOCICLIB
     Dosage: 125 MILLIGRAM, CYCLICAL
     Route: 065
     Dates: start: 201908
  5. GOSERELIN [Suspect]
     Active Substance: GOSERELIN
     Indication: BREAST CANCER METASTATIC
     Dosage: UNK
     Route: 065
     Dates: start: 201908

REACTIONS (1)
  - Neutropenia [Recovered/Resolved]
